FAERS Safety Report 6376279-6 (Version None)
Quarter: 2009Q3

REPORT INFORMATION
  Report Type: 
  Country: None (occurrence: None)
  Receive Date: 20090925
  Receipt Date: 20090917
  Transmission Date: 20100115
  Serious: Yes (Hospitalization)
  Sender: FDA-Public Use
  Company Number: US-BIOGENIDEC-2009BI029251

PATIENT
  Age: 45 Year
  Sex: Female

DRUGS (5)
  1. AVONEX [Suspect]
     Indication: MULTIPLE SCLEROSIS
     Route: 030
     Dates: start: 20030101
  2. AVONEX [Suspect]
     Route: 030
     Dates: start: 19970101, end: 19970101
  3. AVONEX [Suspect]
     Route: 030
     Dates: start: 19970101, end: 20000101
  4. AGGRENOX [Concomitant]
     Dates: start: 20050101
  5. PLAVIX [Concomitant]

REACTIONS (6)
  - ANAEMIA [None]
  - CHEST PAIN [None]
  - DYSPNOEA [None]
  - FLUSHING [None]
  - HEADACHE [None]
  - TREMOR [None]
